FAERS Safety Report 25803055 (Version 1)
Quarter: 2025Q3

REPORT INFORMATION
  Report Type: Spontaneous
  Country: EU (occurrence: EU)
  Receive Date: 20250915
  Receipt Date: 20250915
  Transmission Date: 20251020
  Serious: Yes (Other)
  Sender: ASCEND THERAPEUTICS US, LLC
  Company Number: EU-Ascend Therapeutics US, LLC-2184524

PATIENT
  Age: 43 Year
  Sex: Male

DRUGS (3)
  1. ANDROGEL [Suspect]
     Active Substance: TESTOSTERONE
     Indication: Hypopituitarism
     Dates: start: 20250521
  2. TESTOSTERONE [Suspect]
     Active Substance: TESTOSTERONE
     Dates: start: 20250521
  3. TESTOSTERONE [Suspect]
     Active Substance: TESTOSTERONE

REACTIONS (7)
  - Erectile dysfunction [Recovered/Resolved]
  - Product substitution issue [Recovered/Resolved]
  - Nocturia [Recovered/Resolved]
  - Myalgia [Recovered/Resolved]
  - Libido decreased [Recovered/Resolved]
  - Pelvic pain [Recovered/Resolved]
  - Affective disorder [Recovered/Resolved]

NARRATIVE: CASE EVENT DATE: 20250521
